FAERS Safety Report 16018627 (Version 2)
Quarter: 2019Q1

REPORT INFORMATION
  Report Type: Spontaneous
  Country: FR (occurrence: FR)
  Receive Date: 20190228
  Receipt Date: 20190318
  Transmission Date: 20190418
  Serious: Yes (Other)
  Sender: FDA-Public Use
  Company Number: FR-PROVELL PHARMACEUTICALS-2063350

PATIENT
  Age: 56 Year
  Sex: Female
  Weight: 57 kg

DRUGS (8)
  1. METFORMIN [Concomitant]
     Active Substance: METFORMIN HYDROCHLORIDE
     Dates: start: 2015
  2. EUTHYROX [Suspect]
     Active Substance: LEVOTHYROXINE SODIUM
     Dates: start: 201709, end: 2017
  3. EUTHYROX [Suspect]
     Active Substance: LEVOTHYROXINE SODIUM
     Indication: POST PROCEDURAL HYPOTHYROIDISM
     Dates: start: 201703, end: 2017
  4. METFORMIN [Concomitant]
     Active Substance: METFORMIN HYDROCHLORIDE
  5. OMEPRAZOLE. [Concomitant]
     Active Substance: OMEPRAZOLE
  6. GAVISCON [Concomitant]
     Active Substance: ALUMINUM HYDROXIDE\MAGNESIUM CARBONATE
  7. PANTOPRAZOLE [Concomitant]
     Active Substance: PANTOPRAZOLE
  8. EUTHYROX [Suspect]
     Active Substance: LEVOTHYROXINE SODIUM
     Dates: start: 2017, end: 2017

REACTIONS (21)
  - Sleep apnoea syndrome [Not Recovered/Not Resolved]
  - Headache [None]
  - Abdominal pain upper [Recovered/Resolved]
  - Neck pain [None]
  - Tachycardia [None]
  - Flatulence [Recovered/Resolved]
  - Nervousness [None]
  - Hyperhidrosis [None]
  - Gastritis [None]
  - Reaction to excipient [None]
  - Fatigue [None]
  - Polypectomy [None]
  - Ulcer [None]
  - Weight increased [None]
  - Insomnia [Not Recovered/Not Resolved]
  - Agitation [None]
  - Chest discomfort [None]
  - Diabetes mellitus [None]
  - Bronchitis [None]
  - Memory impairment [None]
  - Tremor [None]

NARRATIVE: CASE EVENT DATE: 2017
